FAERS Safety Report 6608531-0 (Version None)
Quarter: 2010Q1

REPORT INFORMATION
  Report Type: 
  Country: None (occurrence: None)
  Receive Date: 20100212
  Receipt Date: 20091125
  Transmission Date: 20100710
  Serious: No
  Sender: FDA-Public Use
  Company Number: 1000010386

PATIENT
  Age: 52 Year
  Sex: Female

DRUGS (16)
  1. SAVELLA [Suspect]
     Indication: FIBROMYALGIA
     Dosage: 12.5 MG (12.5 MG, 1 IN 1 D), ORAL; SEE IMAGE
     Route: 048
     Dates: start: 20090701, end: 20090701
  2. SAVELLA [Suspect]
     Indication: FIBROMYALGIA
     Dosage: 12.5 MG (12.5 MG, 1 IN 1 D), ORAL; SEE IMAGE
     Route: 048
     Dates: start: 20090701, end: 20090701
  3. SAVELLA [Suspect]
     Indication: FIBROMYALGIA
     Dosage: 12.5 MG (12.5 MG, 1 IN 1 D), ORAL; SEE IMAGE
     Route: 048
     Dates: start: 20090701, end: 20090701
  4. SAVELLA [Suspect]
     Indication: FIBROMYALGIA
     Dosage: 100 MG (50 MG, 2 IN 1 D), ORAL
     Route: 048
     Dates: start: 20090701, end: 20091001
  5. METFORMIN HYDROCHLORIDE [Concomitant]
  6. OXYCONTIN [Concomitant]
  7. CYMBALTA [Concomitant]
  8. GLIPIZIDE [Concomitant]
  9. BENTYL [Concomitant]
  10. FOLIC ACID [Concomitant]
  11. VITAMIN B-12 [Concomitant]
  12. FLECTOR [Concomitant]
  13. PROTONIX [Concomitant]
  14. ZANAFLEX [Concomitant]
  15. VOLTAREN [Concomitant]
  16. XANAX [Concomitant]

REACTIONS (1)
  - VOMITING [None]
